FAERS Safety Report 10396073 (Version 1)
Quarter: 2014Q3

REPORT INFORMATION
  Report Type: Spontaneous
  Country: US (occurrence: None)
  Receive Date: 20140815
  Receipt Date: 20140815
  Transmission Date: 20150326
  Serious: Yes (Disabling, Other)
  Sender: FDA-Public Use
  Company Number: None

PATIENT
  Age: 25 Year
  Sex: Female
  Weight: 99.79 kg

DRUGS (1)
  1. IMPLANON [Suspect]
     Active Substance: ETONOGESTREL

REACTIONS (11)
  - Nasopharyngitis [None]
  - Constipation [None]
  - Oligomenorrhoea [None]
  - Lethargy [None]
  - Depression [None]
  - Somnolence [None]
  - Crying [None]
  - Mood swings [None]
  - Weight increased [None]
  - Hair growth abnormal [None]
  - Disturbance in sexual arousal [None]
